FAERS Safety Report 7941046 (Version 2)
Quarter: 2012Q4

REPORT INFORMATION
  Report Type: Spontaneous
  Country: US (occurrence: None)
  Receive Date: 20110419
  Receipt Date: 20121101
  Transmission Date: 20130627
  Serious: Yes (Hospitalization, Other)
  Sender: FDA-Public Use
  Company Number: 2011MA003654

PATIENT
  Sex: Female
  Weight: 87.09 kg

DRUGS (63)
  1. METOCLOPRAMIDE HYDROCHLORIDE [Suspect]
     Indication: ACID REFLUX (ESOPHAGEAL)
     Dates: start: 20060204, end: 20081017
  2. METOCLOPRAMIDE HYDROCHLORIDE [Suspect]
     Indication: GERD
     Dates: start: 20060204, end: 20081017
  3. ACTIQ [Concomitant]
  4. ALBUTEROL [Concomitant]
  5. AMBIEN [Concomitant]
  6. AZITHROMYCIN [Concomitant]
  7. BENEFIBER [Concomitant]
  8. BENZONATATE [Concomitant]
  9. BONIVA [Concomitant]
  10. BUDEPRION [Concomitant]
  11. BUTALBITAL/ACETAMINOPHEN/CAFFEINE [Concomitant]
  12. CALCIUM [Concomitant]
  13. CARAFATE [Concomitant]
  14. CEPHALEXIN [Concomitant]
  15. CLONAZEPAM [Concomitant]
  16. CLOTRIMAZOLE [Concomitant]
  17. COLACE [Concomitant]
  18. CORTEF [Concomitant]
  19. CYCLOBENZAPRINE [Concomitant]
  20. DILAUDID [Concomitant]
  21. ENDOCET [Concomitant]
  22. FENTANYL [Concomitant]
  23. FLEXERIL [Concomitant]
  24. FLORINEF [Concomitant]
  25. FLOVENT [Concomitant]
  26. FLUCONAZOLE [Concomitant]
  27. FLUDROCORTISONE [Concomitant]
  28. FOLIC ACID [Concomitant]
  29. FROVA [Concomitant]
  30. HCTZ [Concomitant]
  31. HYDROMORPHONE [Concomitant]
  32. HYDROXYCHLOROQUINE [Concomitant]
  33. KLONOPIN [Concomitant]
  34. KLOR-CON [Concomitant]
  35. LEUCOVORIN [Concomitant]
  36. LEVAQUIN [Concomitant]
  37. LEVOXYL [Concomitant]
  38. LIPITOR [Concomitant]
  39. METHADONE [Concomitant]
  40. METHOTREXATE [Concomitant]
  41. METHYLPREDNISOLONE [Concomitant]
  42. METRONIDAZOLE [Concomitant]
  43. MVI [Concomitant]
  44. NEXIUM [Concomitant]
  45. OXYCODONE [Concomitant]
  46. PERCOCET [Concomitant]
  47. PHENERGAN [Concomitant]
  48. PLAQUENIL [Concomitant]
  49. POTASSIUM [Concomitant]
  50. PREDNISONE [Concomitant]
  51. PREMARIN [Concomitant]
  52. PROMETHAZINE [Concomitant]
  53. PROMETHAZINE W/CODEINE [Concomitant]
  54. RECLAST [Concomitant]
  55. RELPAX [Concomitant]
  56. SINGULAIR [Concomitant]
  57. SPIRIVA [Concomitant]
  58. TETRACYCLINE [Concomitant]
  59. TOFRANIL [Concomitant]
  60. TOPAMAX [Concomitant]
  61. TORSEMIDE [Concomitant]
  62. WELLBUTRIN [Concomitant]
  63. XIFAXAN [Concomitant]

REACTIONS (15)
  - Essential tremor [None]
  - Headache [None]
  - Abdominal pain [None]
  - Abdominal distension [None]
  - Abdominal distension [None]
  - Flatulence [None]
  - Large intestine polyp [None]
  - Haemorrhoids [None]
  - Diverticulum [None]
  - Oesophagitis [None]
  - Hiatus hernia [None]
  - Irritable bowel syndrome [None]
  - Large intestine anastomosis [None]
  - Muscular weakness [None]
  - Hypoaesthesia [None]
